FAERS Safety Report 8618983 (Version 5)
Quarter: 2013Q2

REPORT INFORMATION
  Report Type: Spontaneous
  Country: US (occurrence: US)
  Receive Date: 20120618
  Receipt Date: 20130516
  Transmission Date: 20140414
  Serious: Yes (Hospitalization, Other)
  Sender: FDA-Public Use
  Company Number: US-BAYER-2012-059459

PATIENT
  Age: 37 Year
  Sex: Female
  Weight: 67 kg

DRUGS (13)
  1. YAZ [Suspect]
  2. YASMIN [Suspect]
  3. OCELLA [Suspect]
  4. ALBUTEROL SULFATE [Concomitant]
     Dosage: 2.5MG/3 ML
     Dates: start: 20090218
  5. SYMBICORT [Concomitant]
     Dosage: UNK
     Dates: start: 20090218
  6. LAMISIL [Concomitant]
     Dosage: UNK
     Dates: start: 20090218
  7. CIPROFLOXACIN [Concomitant]
  8. FLAGYL [Concomitant]
  9. VICODIN [Concomitant]
  10. PERCOCET [OXYCODONE HYDROCHLORIDE,PARACETAMOL] [Concomitant]
  11. MULTIVITAMIN [Concomitant]
  12. B12 [Concomitant]
  13. FENTANYL [Concomitant]
     Dosage: 25 MCG/HR

REACTIONS (3)
  - Thrombophlebitis superficial [None]
  - Pulmonary embolism [None]
  - Deep vein thrombosis [None]
